FAERS Safety Report 17878881 (Version 1)
Quarter: 2020Q2

REPORT INFORMATION
  Report Type: Spontaneous
  Country: US (occurrence: US)
  Receive Date: 20200610
  Receipt Date: 20200610
  Transmission Date: 20200714
  Serious: Yes (Other)
  Sender: FDA-Public Use
  Company Number: US-SUN PHARMACEUTICAL INDUSTRIES LTD-2020R1-249351

PATIENT
  Age: 26 Year
  Sex: Female

DRUGS (2)
  1. DOXORUBICIN [Suspect]
     Active Substance: DOXORUBICIN
     Indication: SMALL CELL CARCINOMA
     Dosage: 45 MG/M2 IV OVER 30 MIN ON DAY 3
     Route: 042
  2. CISPLATIN. [Suspect]
     Active Substance: CISPLATIN
     Indication: SMALL CELL CARCINOMA
     Dosage: 90 MG/M2 IV OVER 4 H ON DAY 1
     Route: 042

REACTIONS (1)
  - Amenorrhoea [Recovered/Resolved]
